FAERS Safety Report 10687788 (Version 1)
Quarter: 2014Q4

REPORT INFORMATION
  Report Type: Spontaneous
  Country: US (occurrence: None)
  Receive Date: 20141231
  Receipt Date: 20141231
  Transmission Date: 20150529
  Serious: No
  Sender: FDA-Public Use
  Company Number: None

PATIENT
  Age: 48 Year
  Sex: Female
  Weight: 64.86 kg

DRUGS (1)
  1. PANTOPRAZOLE SODIUM DELAYED RELEASE [Suspect]
     Active Substance: PANTOPRAZOLE SODIUM
     Indication: GASTROOESOPHAGEAL REFLUX DISEASE
     Route: 048
     Dates: start: 20141221, end: 20141224

REACTIONS (3)
  - Pruritus [None]
  - Urticaria [None]
  - Scab [None]

NARRATIVE: CASE EVENT DATE: 20141221
